FAERS Safety Report 13140800 (Version 1)
Quarter: 2017Q1

REPORT INFORMATION
  Report Type: Spontaneous
  Country: US (occurrence: US)
  Receive Date: 20170123
  Receipt Date: 20170123
  Transmission Date: 20170428
  Serious: No
  Sender: FDA-Public Use
  Company Number: US-UNITED THERAPEUTICS-UNT-2016-016240

PATIENT
  Sex: Female
  Weight: 53.61 kg

DRUGS (3)
  1. ADEMPAS [Concomitant]
     Active Substance: RIOCIGUAT
     Indication: PRODUCT USED FOR UNKNOWN INDICATION
  2. REMODULIN [Suspect]
     Active Substance: TREPROSTINIL
     Indication: PULMONARY ARTERIAL HYPERTENSION
     Dosage: 0.008 ?G/KG, CONTINUING
     Route: 041
     Dates: start: 20160929
  3. LETAIRIS [Concomitant]
     Active Substance: AMBRISENTAN
     Indication: PRODUCT USED FOR UNKNOWN INDICATION

REACTIONS (9)
  - Pain in jaw [Recovered/Resolved]
  - Weight decreased [Unknown]
  - Back pain [Unknown]
  - Muscle spasms [Unknown]
  - Flushing [Unknown]
  - Oedema peripheral [Unknown]
  - Blood potassium decreased [Unknown]
  - Oedema [Unknown]
  - Faeces soft [Unknown]

NARRATIVE: CASE EVENT DATE: 2016
